FAERS Safety Report 20721423 (Version 1)
Quarter: 2022Q2

REPORT INFORMATION
  Report Type: Spontaneous
  Country: US (occurrence: None)
  Receive Date: 20220417
  Receipt Date: 20220417
  Transmission Date: 20220721
  Serious: No
  Sender: FDA-Public Use
  Company Number: None

PATIENT
  Age: 33 Year
  Sex: Female
  Weight: 123.75 kg

DRUGS (11)
  1. DUPIXENT [Suspect]
     Active Substance: DUPILUMAB
     Indication: Chronic rhinosinusitis with nasal polyps
     Dosage: OTHER FREQUENCY : EVERY TWO WEEKS;?OTHER ROUTE : SUBCUTANEOUS INJECTION;?
     Route: 050
     Dates: start: 20201222
  2. TOPIRAMATE [Concomitant]
     Active Substance: TOPIRAMATE
  3. DULOXETINE [Concomitant]
     Active Substance: DULOXETINE
  4. FEXOFENADINE [Concomitant]
     Active Substance: FEXOFENADINE HYDROCHLORIDE
  5. PROAIR HFA [Concomitant]
     Active Substance: ALBUTEROL SULFATE
  6. Ipratroium-albuterol [Concomitant]
  7. EPINEPHRINE [Concomitant]
     Active Substance: EPINEPHRINE
  8. SUMATRIPTAN [Concomitant]
     Active Substance: SUMATRIPTAN
  9. LORAZEPAM [Concomitant]
     Active Substance: LORAZEPAM
  10. COLESTIPOL [Concomitant]
     Active Substance: COLESTIPOL
  11. BENADRYL [Concomitant]
     Active Substance: DIPHENHYDRAMINE HYDROCHLORIDE

REACTIONS (1)
  - Erythema nodosum [None]

NARRATIVE: CASE EVENT DATE: 20220115
